FAERS Safety Report 4746554-7 (Version None)
Quarter: 2005Q3

REPORT INFORMATION
  Report Type: 
  Country: None (occurrence: None)
  Receive Date: 20050815
  Receipt Date: 20050801
  Transmission Date: 20060218
  Serious: Yes (Hospitalization, Other)
  Sender: FDA-Public Use
  Company Number: US_0503113595

PATIENT
  Age: 49 Year
  Sex: Male
  Weight: 86 kg

DRUGS (13)
  1. ZYPREXA [Suspect]
     Indication: DEPRESSION
     Dates: start: 19970101, end: 20050123
  2. PANTOPRAZOLE [Concomitant]
  3. LISINOPRIL [Concomitant]
  4. CLONIDINE [Concomitant]
  5. PAROXETINE [Concomitant]
  6. DIAZEPAM [Concomitant]
  7. MIRTAZAPINE [Concomitant]
  8. ALBUTEROL [Concomitant]
  9. FLUTICASONE PROPIONATE W/SALMETEROL XINAFOATE [Concomitant]
  10. LORAZEPAM [Concomitant]
  11. HYDROXYZINE [Concomitant]
  12. NEXIUM [Concomitant]
  13. LABETALOL [Concomitant]

REACTIONS (11)
  - ALANINE AMINOTRANSFERASE INCREASED [None]
  - ASPARTATE AMINOTRANSFERASE INCREASED [None]
  - BLOOD CHLORIDE DECREASED [None]
  - BLOOD POTASSIUM DECREASED [None]
  - CHEST PAIN [None]
  - DIABETES MELLITUS NON-INSULIN-DEPENDENT [None]
  - DRUG SCREEN POSITIVE [None]
  - GLYCOSYLATED HAEMOGLOBIN INCREASED [None]
  - IMMUNOGLOBULINS INCREASED [None]
  - PANCREATITIS [None]
  - PROTEIN TOTAL INCREASED [None]
